FAERS Safety Report 7015945-6 (Version None)
Quarter: 2010Q3

REPORT INFORMATION
  Report Type: 
  Country: None (occurrence: None)
  Receive Date: 20100927
  Receipt Date: 20100423
  Transmission Date: 20110219
  Serious: No
  Sender: FDA-Public Use
  Company Number: US-ASTRAZENECA-2010SE15484

PATIENT
  Age: 73 Year
  Sex: Female
  Weight: 72.6 kg

DRUGS (2)
  1. ARIMIDEX [Suspect]
     Indication: BREAST CANCER STAGE IV
     Route: 048
     Dates: start: 20060101
  2. IMIPRAMINE [Concomitant]

REACTIONS (6)
  - ABDOMINAL DISCOMFORT [None]
  - DIZZINESS [None]
  - DRUG DOSE OMISSION [None]
  - HOT FLUSH [None]
  - NAUSEA [None]
  - TREMOR [None]
